FAERS Safety Report 16636797 (Version 1)
Quarter: 2019Q3

REPORT INFORMATION
  Report Type: Spontaneous
  Country: US (occurrence: US)
  Receive Date: 20190726
  Receipt Date: 20190726
  Transmission Date: 20191004
  Serious: No
  Sender: FDA-Public Use
  Company Number: PHHY2019US169049

PATIENT

DRUGS (1)
  1. MYDRIACYL [Suspect]
     Active Substance: TROPICAMIDE
     Indication: PRODUCT USED FOR UNKNOWN INDICATION
     Route: 065

REACTIONS (3)
  - Eye swelling [Unknown]
  - Ocular hyperaemia [Unknown]
  - Hypersensitivity [Unknown]
